FAERS Safety Report 4995413-3 (Version None)
Quarter: 2006Q2

REPORT INFORMATION
  Report Type: 
  Country: None (occurrence: None)
  Receive Date: 20060503
  Receipt Date: 20060426
  Transmission Date: 20061013
  Serious: Yes (Other)
  Sender: FDA-Public Use
  Company Number: HQWYE595131MAR06

PATIENT
  Age: 22 Year
  Sex: Male
  Weight: 61.29 kg

DRUGS (3)
  1. ADVIL [Suspect]
     Indication: HEADACHE
     Dosage: 2 TABLETS EVERY 4-6 HOURS, ORAL
     Route: 048
     Dates: start: 20060316, end: 20060320
  2. ADVIL [Suspect]
     Indication: PYREXIA
     Dosage: 2 TABLETS EVERY 4-6 HOURS, ORAL
     Route: 048
     Dates: start: 20060316, end: 20060320
  3. MULTIVITAMINS, PLAIN (MULTIVITAMINS, PLAIN) [Concomitant]

REACTIONS (2)
  - DYSARTHRIA [None]
  - MENINGITIS VIRAL [None]
